FAERS Safety Report 16320982 (Version 4)
Quarter: 2019Q3

REPORT INFORMATION
  Report Type: Spontaneous
  Country: JP (occurrence: JP)
  Receive Date: 20190516
  Receipt Date: 20190903
  Transmission Date: 20191004
  Serious: Yes (Death, Hospitalization, Other)
  Sender: FDA-Public Use
  Company Number: JP-CELGENEUS-JPN-20190504896

PATIENT
  Age: 73 Year
  Sex: Male
  Weight: 51 kg

DRUGS (8)
  1. HANGESHASHINTO [Suspect]
     Active Substance: HERBALS
     Indication: STOMATITIS
     Dosage: 2.5 GRAM
     Route: 048
     Dates: start: 20181009, end: 20181205
  2. PREDNISOLONE. [Concomitant]
     Active Substance: PREDNISOLONE
     Indication: PRODUCT USED FOR UNKNOWN INDICATION
     Dosage: 30 MILLIGRAM
     Route: 065
     Dates: start: 20181208, end: 20181219
  3. INSULIN GLARGINE [Concomitant]
     Active Substance: INSULIN GLARGINE
     Indication: DIABETES MELLITUS
     Dosage: 10 IU (INTERNATIONAL UNIT)
     Route: 058
     Dates: start: 20180921, end: 20190104
  4. PISULCIN [Concomitant]
     Active Substance: AMPICILLIN SODIUM\SULBACTAM SODIUM
     Indication: TUMOUR ASSOCIATED FEVER
     Dosage: 6 GRAM
     Route: 041
     Dates: start: 20180928
  5. PISULCIN [Concomitant]
     Active Substance: AMPICILLIN SODIUM\SULBACTAM SODIUM
     Dosage: 6 GRAM
     Route: 041
     Dates: start: 20181225, end: 20190104
  6. GEMCITABINE. [Suspect]
     Active Substance: GEMCITABINE
     Indication: PANCREATIC CARCINOMA METASTATIC
     Dosage: 1500 MILLIGRAM
     Route: 041
     Dates: start: 20181003, end: 20181121
  7. ABRAXANE [Suspect]
     Active Substance: PACLITAXEL
     Indication: PANCREATIC CARCINOMA METASTATIC
     Dosage: 180 MILLIGRAM
     Route: 041
     Dates: start: 20181003, end: 20181121
  8. GRANISETRON HYDROCHLORIDE. [Concomitant]
     Active Substance: GRANISETRON HYDROCHLORIDE
     Indication: PANCREATIC CARCINOMA METASTATIC
     Dosage: 100 MILLIGRAM
     Route: 041
     Dates: start: 20181003, end: 20181121

REACTIONS (7)
  - Stomatitis [Unknown]
  - Pneumonia bacterial [Fatal]
  - Muscular weakness [Unknown]
  - Tachycardia [Unknown]
  - Interstitial lung disease [Fatal]
  - Haemoglobin decreased [Unknown]
  - Emphysema [Fatal]

NARRATIVE: CASE EVENT DATE: 20181009
